FAERS Safety Report 8155905-5 (Version None)
Quarter: 2012Q1

REPORT INFORMATION
  Report Type: 
  Country: None (occurrence: None)
  Receive Date: 20120222
  Receipt Date: 20120213
  Transmission Date: 20120608
  Serious: Yes (Hospitalization)
  Sender: FDA-Public Use
  Company Number: US-JNJFOC-20120206727

PATIENT
  Age: 47 Year
  Sex: Male
  Weight: 82.56 kg

DRUGS (13)
  1. RISPERDAL CONSTA [Suspect]
     Indication: SCHIZOPHRENIA, PARANOID TYPE
     Route: 030
     Dates: start: 20110101
  2. RISPERDAL [Concomitant]
     Route: 048
  3. METFORMIN HCL [Concomitant]
     Indication: DIABETES MELLITUS
     Route: 048
  4. ADVAIR DISKUS 100/50 [Concomitant]
     Indication: ASTHMA
     Route: 055
  5. LEVEMIR [Concomitant]
     Indication: DIABETES MELLITUS
     Route: 058
  6. CELEXA [Concomitant]
     Indication: DEPRESSION
     Route: 048
  7. ZYPREXA [Concomitant]
     Dosage: 20MG/EVERY NIGHT
     Route: 048
  8. BUSPAR [Concomitant]
     Route: 048
  9. VENTOLIN [Concomitant]
     Indication: ASTHMA
     Route: 055
  10. NOVOLOG [Concomitant]
     Indication: DIABETES MELLITUS
     Route: 058
  11. PRILOSEC [Concomitant]
     Route: 048
  12. NAMENDA [Concomitant]
     Indication: DEMENTIA
     Route: 048
  13. DEPAKOTE [Concomitant]
     Indication: DRUG THERAPY
     Route: 065

REACTIONS (3)
  - DRUG DOSE OMISSION [None]
  - HOSPITALISATION [None]
  - DEVICE MALFUNCTION [None]
